FAERS Safety Report 6914833-0 (Version None)
Quarter: 2010Q3

REPORT INFORMATION
  Report Type: 
  Country: None (occurrence: None)
  Receive Date: 20100809
  Receipt Date: 20100730
  Transmission Date: 20110219
  Serious: Yes (Hospitalization)
  Sender: FDA-Public Use
  Company Number: GXKR2010IT08600

PATIENT
  Age: 59 Year
  Sex: Male

DRUGS (5)
  1. CYCLOSPORINE [Suspect]
     Indication: RENAL TRANSPLANT
     Route: 065
  2. TICLOPIDINE (NGX) [Suspect]
     Route: 065
  3. MYCOPHENOLATE SODIUM [Concomitant]
     Route: 065
  4. STEROIDS NOS [Concomitant]
     Route: 065
  5. MESALAZINE [Concomitant]
     Dosage: UNK
     Route: 065

REACTIONS (8)
  - ABDOMINAL PAIN [None]
  - ANAEMIA [None]
  - ANISOCYTOSIS [None]
  - ASTHENIA [None]
  - COLITIS [None]
  - DIARRHOEA HAEMORRHAGIC [None]
  - PYREXIA [None]
  - THROMBOTIC MICROANGIOPATHY [None]
